APPROVED DRUG PRODUCT: PCE
Active Ingredient: ERYTHROMYCIN
Strength: 333MG
Dosage Form/Route: TABLET, COATED PARTICLES;ORAL
Application: N050611 | Product #001
Applicant: AZURITY PHARMACEUTICALS INC
Approved: Sep 9, 1986 | RLD: Yes | RS: No | Type: DISCN